FAERS Safety Report 14768193 (Version 3)
Quarter: 2018Q2

REPORT INFORMATION
  Report Type: Report from Study
  Country: CO (occurrence: CO)
  Receive Date: 20180417
  Receipt Date: 20180629
  Transmission Date: 20180711
  Serious: Yes (Death, Hospitalization)
  Sender: FDA-Public Use
  Company Number: PHHY2018CO066179

PATIENT
  Age: 55 Year
  Sex: Male
  Weight: 68 kg

DRUGS (2)
  1. OMEPRAZOLE. [Concomitant]
     Active Substance: OMEPRAZOLE
     Indication: PRODUCT USED FOR UNKNOWN INDICATION
     Route: 065
  2. ENTRESTO [Suspect]
     Active Substance: SACUBITRIL\VALSARTAN
     Indication: CARDIAC FAILURE
     Dosage: 50 MG ,(24 MG SACUBITRIL / 26 MG VALSARTAN), Q12H
     Route: 048
     Dates: start: 20170802

REACTIONS (6)
  - Arrhythmia [Unknown]
  - Nasopharyngitis [Unknown]
  - Cardiac discomfort [Unknown]
  - Death [Fatal]
  - Cardiac disorder [Unknown]
  - Chills [Unknown]

NARRATIVE: CASE EVENT DATE: 20180501
